FAERS Safety Report 7257476-4 (Version None)
Quarter: 2011Q1

REPORT INFORMATION
  Report Type: 
  Country: None (occurrence: None)
  Receive Date: 20110129
  Receipt Date: 20100607
  Transmission Date: 20110831
  Serious: Yes (Other)
  Sender: FDA-Public Use
  Company Number: US-ABBOTT-10P-163-0640802-00

PATIENT
  Sex: Male
  Weight: 89.438 kg

DRUGS (1)
  1. HUMIRA [Suspect]
     Indication: RHEUMATOID ARTHRITIS
     Route: 058
     Dates: start: 20040610, end: 20100415

REACTIONS (3)
  - METASTASES TO LUNG [None]
  - METASTASES TO LIVER [None]
  - RENAL CANCER [None]
